FAERS Safety Report 9193953 (Version 2)
Quarter: 2013Q2

REPORT INFORMATION
  Report Type: Spontaneous
  Country: US (occurrence: US)
  Receive Date: 20130327
  Receipt Date: 20130507
  Transmission Date: 20140414
  Serious: Yes (Hospitalization)
  Sender: FDA-Public Use
  Company Number: US-BRISTOL-MYERS SQUIBB COMPANY-18714873

PATIENT
  Age: 85 Year
  Sex: Male
  Weight: 77.1 kg

DRUGS (1)
  1. ELIQUIS [Suspect]
     Dates: start: 20130213

REACTIONS (1)
  - Pneumonia [Unknown]
